FAERS Safety Report 13501022 (Version 2)
Quarter: 2017Q4

REPORT INFORMATION
  Report Type: Spontaneous
  Country: US (occurrence: US)
  Receive Date: 20170501
  Receipt Date: 20171027
  Transmission Date: 20180320
  Serious: No
  Sender: FDA-Public Use
  Company Number: US-ROCHE-1853941

PATIENT
  Sex: Male

DRUGS (1)
  1. ESBRIET [Suspect]
     Active Substance: PIRFENIDONE
     Indication: PRODUCT USED FOR UNKNOWN INDICATION
     Dosage: ON INITIAL TITRATION DOSE
     Route: 048
     Dates: start: 201610

REACTIONS (4)
  - Dizziness [Unknown]
  - Chills [Unknown]
  - Pain [Unknown]
  - Tremor [Unknown]

NARRATIVE: CASE EVENT DATE: 201610
